FAERS Safety Report 9722957 (Version 1)
Quarter: 2013Q4

REPORT INFORMATION
  Report Type: Spontaneous
  Country: US (occurrence: None)
  Receive Date: 20131126
  Receipt Date: 20131126
  Transmission Date: 20140711
  Serious: Yes (Other)
  Sender: FDA-Public Use
  Company Number: B0947041A

PATIENT
  Age: 48 Year
  Sex: Male

DRUGS (3)
  1. PAZOPANIB (FORMULATION UNKNOWN) (GENERIC) (PAZOPANIB) [Suspect]
     Indication: METASTATIC NEOPLASM
  2. SUNITINIB [Suspect]
     Indication: METASTATIC NEOPLASM
  3. SORAFENIB [Suspect]
     Indication: METASTATIC NEOPLASM

REACTIONS (5)
  - Proteinuria [None]
  - Malignant neoplasm progression [None]
  - Renal cell carcinoma [None]
  - Nephrotic syndrome [None]
  - Blood pressure inadequately controlled [None]
